FAERS Safety Report 22861900 (Version 3)
Quarter: 2023Q4

REPORT INFORMATION
  Report Type: Report from Study
  Country: CH (occurrence: CH)
  Receive Date: 20230824
  Receipt Date: 20231013
  Transmission Date: 20240110
  Serious: Yes (Hospitalization)
  Sender: FDA-Public Use
  Company Number: CH-002147023-NVSC2023CH032464

PATIENT
  Age: 46 Year
  Sex: Male

DRUGS (15)
  1. TASIGNA [Suspect]
     Active Substance: NILOTINIB
     Indication: Acute lymphocytic leukaemia
     Dosage: 800 MG,EVERY1 DAY
     Route: 048
     Dates: start: 20200810, end: 20201202
  2. TASIGNA [Suspect]
     Active Substance: NILOTINIB
     Dosage: 300 MG, EVERY 1 DAY(S)
     Route: 048
     Dates: start: 20201203, end: 20201214
  3. ONCOVIN [Suspect]
     Active Substance: VINCRISTINE SULFATE
     Indication: Acute lymphocytic leukaemia
     Dosage: 2 MG, EVERY 1 DAY (S)
     Route: 042
     Dates: start: 20200810
  4. DEXAMETHASONE ACETATE [Suspect]
     Active Substance: DEXAMETHASONE ACETATE
     Indication: Acute lymphocytic leukaemia
     Dosage: 40 MG, EVERY 1 DAY
     Route: 048
     Dates: start: 20200810
  5. CYTARABINE [Suspect]
     Active Substance: CYTARABINE
     Indication: Acute lymphocytic leukaemia
     Dosage: 11100 MG, EVERY 1 DAY (LYOPHILISATE FOR PARENTERAL USE)
     Route: 042
     Dates: start: 20200909
  6. LEUCOVORIN [Suspect]
     Active Substance: LEUCOVORIN\LEUCOVORIN CALCIUM
     Indication: Acute lymphocytic leukaemia
     Dosage: 25 MG, EVERY 1 DAY(S)
     Route: 042
     Dates: start: 20200909
  7. VINDESINE [Suspect]
     Active Substance: VINDESINE
     Indication: Acute lymphocytic leukaemia
     Dosage: 4 MG, EVERY 1 DAY(S)
     Route: 042
     Dates: start: 20201020
  8. LENOGRASTIM [Suspect]
     Active Substance: LENOGRASTIM
     Indication: Acute lymphocytic leukaemia
     Dosage: 300 MG, EVERY 1 DAY(S)
     Route: 058
     Dates: start: 20200828
  9. METHOTREXATE [Suspect]
     Active Substance: METHOTREXATE
     Indication: Acute lymphocytic leukaemia
     Dosage: 15 MG, EVERY 1 DAY(S)
     Route: 037
     Dates: start: 20200730, end: 20201006
  10. METHOTREXATE [Suspect]
     Active Substance: METHOTREXATE
     Dosage: 45 MG, EVERY 1 DAY(S)
     Route: 048
     Dates: start: 20201203, end: 20201210
  11. METHOTREXATE [Suspect]
     Active Substance: METHOTREXATE
     Indication: Acute lymphocytic leukaemia
     Dosage: 1850 MG,  EVERY 1 DAY (50MG/2ML)
     Route: 042
     Dates: start: 20200908, end: 20201104
  12. GLIVEC [Concomitant]
     Active Substance: IMATINIB MESYLATE
     Indication: Acute lymphocytic leukaemia
     Dosage: 600 MG
     Route: 048
     Dates: start: 20210326
  13. PURINETHOL [Concomitant]
     Active Substance: MERCAPTOPURINE
     Indication: Acute lymphocytic leukaemia
     Dosage: 100 MG, EVERY 1 DAY
     Route: 048
     Dates: start: 20201203
  14. METHYLPREDNISOLONE [Concomitant]
     Active Substance: METHYLPREDNISOLONE
     Indication: Acute lymphocytic leukaemia
     Dosage: 40 MG EVERY 1 DAY(S
     Route: 037
     Dates: start: 20200730
  15. CYTARABINE [Concomitant]
     Active Substance: CYTARABINE
     Indication: Acute lymphocytic leukaemia
     Dosage: 40 MG
     Route: 037
     Dates: start: 20200730

REACTIONS (1)
  - Carotid artery dissection [Recovered/Resolved with Sequelae]

NARRATIVE: CASE EVENT DATE: 20221021
